FAERS Safety Report 5964043-9 (Version None)
Quarter: 2008Q4

REPORT INFORMATION
  Report Type: 
  Country: None (occurrence: None)
  Receive Date: 20081124
  Receipt Date: 20081112
  Transmission Date: 20090506
  Serious: Yes (Hospitalization, Other)
  Sender: FDA-Public Use
  Company Number: US-ELI_LILLY_AND_COMPANY-US200811002876

PATIENT
  Age: 54 Year
  Sex: Female

DRUGS (16)
  1. CYMBALTA [Suspect]
     Indication: FIBROMYALGIA
     Dosage: 30 MG, UNK
     Dates: start: 20080201, end: 20080101
  2. CYMBALTA [Suspect]
     Dosage: 60 MG, UNK
     Dates: start: 20080401, end: 20080814
  3. RAMELTEON [Concomitant]
  4. AMITRIPTYLINE HCL [Concomitant]
  5. POTASSIUM CHLORIDE [Concomitant]
  6. GABAPENTIN [Concomitant]
  7. SINGULAIR [Concomitant]
  8. PROVENTIL-HFA [Concomitant]
  9. ADVAIR DISKUS 100/50 [Concomitant]
  10. SOMA [Concomitant]
  11. LORTAB [Concomitant]
  12. LEVOTHYROXINE SODIUM [Concomitant]
  13. OXYCODONE HCL [Concomitant]
  14. MULTI-VITAMIN [Concomitant]
  15. VITAMIN B [Concomitant]
  16. THERA-GESIC [Concomitant]
     Route: 061

REACTIONS (17)
  - BODY DYSMORPHIC DISORDER [None]
  - CARDIAC ENZYMES INCREASED [None]
  - CARDIAC FAILURE [None]
  - CHROMATURIA [None]
  - DIZZINESS [None]
  - DRUG INEFFECTIVE [None]
  - FALL [None]
  - HEPATIC FAILURE [None]
  - HIP SWELLING [None]
  - INJURY [None]
  - LOSS OF CONSCIOUSNESS [None]
  - MONOPLEGIA [None]
  - MULTI-ORGAN FAILURE [None]
  - OEDEMA PERIPHERAL [None]
  - PERONEAL NERVE PALSY [None]
  - PNEUMONIA [None]
  - RESPIRATORY FAILURE [None]
